FAERS Safety Report 18181580 (Version 1)
Quarter: 2020Q3

REPORT INFORMATION
  Report Type: Spontaneous
  Country: ES (occurrence: ES)
  Receive Date: 20200821
  Receipt Date: 20200821
  Transmission Date: 20201103
  Serious: Yes (Other)
  Sender: FDA-Public Use
  Company Number: ES-CADILA HEALTHCARE LIMITED-ES-ZYDUS-028029

PATIENT

DRUGS (7)
  1. CLINDAMYCINE (PHOSPHATE DE) [Concomitant]
     Active Substance: CLINDAMYCIN PHOSPHATE
     Indication: PNEUMONIA BACTERIAL
     Route: 048
     Dates: start: 20180104, end: 20180112
  2. LORAZEPAM. [Concomitant]
     Active Substance: LORAZEPAM
     Dosage: 1 MILLIGRAM,(INTERVAL :1 DAYS)
     Route: 048
     Dates: start: 2014
  3. LEVOFLOXACIN. [Suspect]
     Active Substance: LEVOFLOXACIN
     Indication: PNEUMONIA BACTERIAL
     Dosage: 250 MILLIGRAM,(INTERVAL :1 DAYS)
     Route: 048
     Dates: start: 20180104, end: 20180112
  4. DEPRAX [Concomitant]
     Dosage: 100 MILLIGRAM,(INTERVAL :1 DAYS)
     Route: 048
     Dates: start: 20170705
  5. CITALOPRAM [Suspect]
     Active Substance: CITALOPRAM HYDROBROMIDE
     Indication: DEPRESSION
     Dosage: 10 MILLIGRAM,(INTERVAL :1 DAYS)
     Route: 048
     Dates: start: 201704, end: 20180112
  6. QUETIAPINA [Concomitant]
     Active Substance: QUETIAPINE
     Indication: DEPRESSION
     Dosage: 25 MILLIGRAM
     Route: 048
     Dates: start: 201710
  7. LOSARTAN. [Concomitant]
     Active Substance: LOSARTAN
     Route: 048

REACTIONS (1)
  - Myoclonus [Recovered/Resolved]

NARRATIVE: CASE EVENT DATE: 20180111
